FAERS Safety Report 20807075 (Version 1)
Quarter: 2022Q2

REPORT INFORMATION
  Report Type: Spontaneous
  Country: US (occurrence: US)
  Receive Date: 20220510
  Receipt Date: 20220510
  Transmission Date: 20220721
  Serious: No
  Sender: FDA-Public Use
  Company Number: US-NOVARTISTESTPH-NVSC2022US106471

PATIENT
  Sex: Female
  Weight: 64 kg

DRUGS (1)
  1. CLOFAZIMINE [Suspect]
     Active Substance: CLOFAZIMINE
     Indication: Mycobacterium abscessus infection
     Dosage: 200 MG, QD
     Route: 048
     Dates: start: 20211223

REACTIONS (2)
  - Pruritus [Recovering/Resolving]
  - Product use in unapproved indication [Unknown]
